FAERS Safety Report 8538898-8 (Version None)
Quarter: 2012Q3

REPORT INFORMATION
  Report Type: 
  Country: None (occurrence: None)
  Receive Date: 20120716
  Receipt Date: 20120704
  Transmission Date: 20120928
  Serious: Yes (Other)
  Sender: FDA-Public Use
  Company Number: DSA_58293_2012

PATIENT
  Sex: Female

DRUGS (2)
  1. BUPROPION HYDROCHLORIDE [Suspect]
     Indication: DEPRESSION
     Dosage: (DF; NOT THE PRESCRIBED AMOUNT ORAL)
     Route: 048
  2. BUPROPION HYDROCHLORIDE [Suspect]
     Indication: ATTENTION DEFICIT/HYPERACTIVITY DISORDER
     Dosage: (DF; NOT THE PRESCRIBED AMOUNT ORAL)
     Route: 048

REACTIONS (4)
  - INTENTIONAL DRUG MISUSE [None]
  - STATUS EPILEPTICUS [None]
  - INTENTIONAL OVERDOSE [None]
  - TOXICITY TO VARIOUS AGENTS [None]
